FAERS Safety Report 7928328-9 (Version None)
Quarter: 2011Q4

REPORT INFORMATION
  Report Type: 
  Country: None (occurrence: None)
  Receive Date: 20111118
  Receipt Date: 20111109
  Transmission Date: 20120403
  Serious: Yes (Other)
  Sender: FDA-Public Use
  Company Number: FR-BAYER-2011-046430

PATIENT
  Age: 41 Year
  Sex: Female
  Weight: 65 kg

DRUGS (4)
  1. DUPHASTON [Concomitant]
     Dosage: UNK
     Dates: start: 20101210, end: 20101219
  2. ESTRADIOL VALERATE/DIENOGEST [Suspect]
     Indication: PRODUCT USED FOR UNKNOWN INDICATION
     Dosage: UNK
     Route: 048
     Dates: start: 20101227, end: 20110513
  3. MIRENA [Suspect]
     Indication: PRODUCT USED FOR UNKNOWN INDICATION
     Dosage: 20 ?G, CONT
     Route: 015
     Dates: start: 20100301, end: 20100801
  4. IODINE (123 I) [Concomitant]
     Indication: HYPERTHYROIDISM
     Dosage: UNK
     Dates: start: 20110315

REACTIONS (8)
  - OLIGOHYDRAMNIOS [None]
  - MATERNAL EXPOSURE DURING PREGNANCY [None]
  - PRODUCT QUALITY ISSUE [None]
  - METRORRHAGIA [None]
  - CAESAREAN SECTION [None]
  - BREAST PAIN [None]
  - PREGNANCY [None]
  - AMENORRHOEA [None]
